FAERS Safety Report 5814383-9 (Version None)
Quarter: 2008Q3

REPORT INFORMATION
  Report Type: 
  Country: None (occurrence: None)
  Receive Date: 20080718
  Receipt Date: 20080717
  Transmission Date: 20090109
  Serious: Yes (Disabling, Other)
  Sender: FDA-Public Use
  Company Number: PL-BRISTOL-MYERS SQUIBB COMPANY-14266126

PATIENT
  Age: 37 Year
  Sex: Male
  Weight: 130 kg

DRUGS (3)
  1. MAYGACE OS [Suspect]
     Indication: POLYPECTOMY
     Dosage: 1 DOSAGEFORM = 30-40 ML
     Route: 048
     Dates: start: 20030101, end: 20080602
  2. MAYGACE OS [Suspect]
     Indication: MALABSORPTION
     Dosage: 1 DOSAGEFORM = 30-40 ML
     Route: 048
     Dates: start: 20030101, end: 20080602
  3. ENCORTON [Suspect]
     Dates: end: 20080101

REACTIONS (5)
  - DEPRESSION [None]
  - ENDOCRINE DISORDER [None]
  - OBESITY [None]
  - OSTEONECROSIS [None]
  - THROMBOSIS [None]
